FAERS Safety Report 9461329 (Version 5)
Quarter: 2014Q2

REPORT INFORMATION
  Report Type: Report from Study
  Country: CA (occurrence: CA)
  Receive Date: 20130816
  Receipt Date: 20140522
  Transmission Date: 20141212
  Serious: Yes (Hospitalization)
  Sender: FDA-Public Use
  Company Number: CA-ROCHE-1252333

PATIENT
  Age: 64 Year
  Sex: Male
  Weight: 128 kg

DRUGS (16)
  1. RITUXAN [Suspect]
     Indication: RHEUMATOID ARTHRITIS
     Route: 042
     Dates: start: 2007
  2. RITUXAN [Suspect]
     Route: 042
     Dates: start: 20130710
  3. DIPHENHYDRAMINE HCL [Concomitant]
     Route: 048
     Dates: start: 20130710
  4. ACETAMINOPHEN [Concomitant]
     Route: 048
     Dates: start: 20130710
  5. METHYLPREDNISOLONE [Concomitant]
     Route: 042
     Dates: start: 20130710
  6. REACTINE (CANADA) [Concomitant]
  7. SPIRIVA [Concomitant]
  8. ROSUVASTATIN [Concomitant]
  9. DAXAS [Concomitant]
  10. RAMIPRIL [Concomitant]
  11. LANSOPRAZOLE [Concomitant]
  12. ADVAIR [Concomitant]
  13. EFFEXOR [Concomitant]
  14. DOCUSATE [Concomitant]
  15. SENOKOT [Concomitant]
  16. EFFEXOR [Concomitant]

REACTIONS (8)
  - Clostridium difficile infection [Recovered/Resolved]
  - Vomiting [Not Recovered/Not Resolved]
  - Fatigue [Not Recovered/Not Resolved]
  - Post procedural infection [Unknown]
  - Diarrhoea [Not Recovered/Not Resolved]
  - Pain [Not Recovered/Not Resolved]
  - Cough [Not Recovered/Not Resolved]
  - Arthritis [Unknown]
